FAERS Safety Report 23810335 (Version 1)
Quarter: 2024Q2

REPORT INFORMATION
  Report Type: Spontaneous
  Country: FR (occurrence: FR)
  Receive Date: 20240502
  Receipt Date: 20240502
  Transmission Date: 20240716
  Serious: Yes (Hospitalization)
  Sender: FDA-Public Use
  Company Number: None

PATIENT
  Age: 29 Year
  Sex: Female

DRUGS (1)
  1. STIVARGA [Suspect]
     Active Substance: REGORAFENIB\REGORAFENIB MONOHYDRATE
     Indication: Chondrosarcoma
     Dosage: 80 MG, Q3WK
     Route: 048
     Dates: start: 20231228

REACTIONS (2)
  - Pneumothorax [Recovering/Resolving]
  - Off label use [None]

NARRATIVE: CASE EVENT DATE: 20231228
